FAERS Safety Report 6240252-9 (Version None)
Quarter: 2009Q2

REPORT INFORMATION
  Report Type: 
  Country: None (occurrence: None)
  Receive Date: 20090623
  Receipt Date: 20080507
  Transmission Date: 20091009
  Serious: No
  Sender: FDA-Public Use
  Company Number: US-ASTRAZENECA-2008UW09429

PATIENT
  Age: 66 Year
  Sex: Female

DRUGS (10)
  1. PULMICORT FLEXHALER [Suspect]
     Indication: ASTHMA
     Dosage: 180 UG, 2 PUFFS BID
     Route: 055
     Dates: start: 20070501
  2. PULMICORT FLEXHALER [Suspect]
     Indication: CHRONIC OBSTRUCTIVE PULMONARY DISEASE
     Dosage: 180 UG, 2 PUFFS BID
     Route: 055
     Dates: start: 20070501
  3. PULMICORT FLEXHALER [Suspect]
     Indication: EMPHYSEMA
     Dosage: 180 UG, 2 PUFFS BID
     Route: 055
     Dates: start: 20070501
  4. CENTRUM [Concomitant]
  5. CALCIUM WITH VITAMIN D [Concomitant]
  6. PREMPRO [Concomitant]
  7. AMLODIPINE [Concomitant]
  8. VITAMIN D [Concomitant]
  9. VITAMIN E [Concomitant]
  10. COMBIVENT [Concomitant]

REACTIONS (2)
  - CHEILITIS [None]
  - INCREASED TENDENCY TO BRUISE [None]
